FAERS Safety Report 4603856-2 (Version None)
Quarter: 2005Q1

REPORT INFORMATION
  Report Type: 
  Country: None (occurrence: None)
  Receive Date: 20050308
  Receipt Date: 20050224
  Transmission Date: 20050727
  Serious: Yes (Hospitalization, Other)
  Sender: FDA-Public Use
  Company Number: 8008542

PATIENT
  Age: 6 Year
  Sex: Male
  Weight: 51.36 kg

DRUGS (6)
  1. KEPPRA [Suspect]
     Indication: PARTIAL SEIZURES
     Dosage: 125 MG 2/D PO
     Route: 048
     Dates: start: 20040801, end: 20040101
  2. KEPPRA [Suspect]
     Indication: PARTIAL SEIZURES
     Dosage: 250 MG 2/D PO
     Route: 048
     Dates: start: 20040101, end: 20040101
  3. KEPPRA [Suspect]
     Indication: PARTIAL SEIZURES
     Dosage: 750 MG 2/D PO
     Dates: start: 20040101, end: 20040101
  4. KEPPRA [Suspect]
     Indication: PARTIAL SEIZURES
     Dosage: 500 MG 2/D PO
     Route: 048
     Dates: start: 20040101, end: 20050113
  5. TOPAMAX [Concomitant]
  6. TRILEPTAL [Concomitant]

REACTIONS (11)
  - ABNORMAL BEHAVIOUR [None]
  - ANGER [None]
  - C-REACTIVE PROTEIN INCREASED [None]
  - CONDITION AGGRAVATED [None]
  - CONVULSION [None]
  - CRYING [None]
  - HEADACHE [None]
  - INFECTION [None]
  - MOOD ALTERED [None]
  - MYALGIA [None]
  - RED BLOOD CELL SEDIMENTATION RATE INCREASED [None]
